FAERS Safety Report 4902311-X (Version None)
Quarter: 2006Q1

REPORT INFORMATION
  Report Type: 
  Country: None (occurrence: None)
  Receive Date: 20060207
  Receipt Date: 20060130
  Transmission Date: 20060701
  Serious: Yes (Other)
  Sender: FDA-Public Use
  Company Number: PHBS2006JP01778

PATIENT
  Age: 54 Year
  Sex: Female

DRUGS (2)
  1. XELODA [Concomitant]
     Route: 048
  2. AREDIA [Suspect]
     Indication: METASTASES TO BONE
     Route: 042
     Dates: end: 20051101

REACTIONS (3)
  - BONE DISORDER [None]
  - OSTEONECROSIS [None]
  - TOOTH FRACTURE [None]
